FAERS Safety Report 8173372-2 (Version None)
Quarter: 2012Q1

REPORT INFORMATION
  Report Type: 
  Country: None (occurrence: None)
  Receive Date: 20120224
  Receipt Date: 20120216
  Transmission Date: 20120608
  Serious: Yes (Death)
  Sender: FDA-Public Use
  Company Number: SPI201200019

PATIENT
  Age: 65 Year
  Sex: Male
  Weight: 87.1 kg

DRUGS (10)
  1. AMITIZA [Suspect]
     Indication: FAECALOMA
     Dosage: 24 MCG, BID, ORAL
     Route: 048
  2. AMITIZA [Suspect]
     Indication: CONSTIPATION
     Dosage: 24 MCG, BID, ORAL
     Route: 048
  3. GEODON [Concomitant]
  4. LACTULOSE [Concomitant]
  5. COUMADIN [Concomitant]
  6. DULCOLAX [Concomitant]
  7. COREG [Concomitant]
  8. NEURONTIN [Concomitant]
  9. MIRALAX [Concomitant]
  10. LASIX [Concomitant]

REACTIONS (7)
  - RESPIRATORY DISTRESS [None]
  - DYSPNOEA [None]
  - FAECALOMA [None]
  - ASTHMA [None]
  - CHEST DISCOMFORT [None]
  - CONSTIPATION [None]
  - CONDITION AGGRAVATED [None]
